FAERS Safety Report 10128588 (Version 2)
Quarter: 2014Q3

REPORT INFORMATION
  Report Type: Spontaneous
  Country: US (occurrence: US)
  Receive Date: 20140428
  Receipt Date: 20140806
  Transmission Date: 20150326
  Serious: Yes (Hospitalization, Other)
  Sender: FDA-Public Use
  Company Number: US-BAYER-2014-060800

PATIENT
  Age: 32 Year
  Sex: Female
  Weight: 97.51 kg

DRUGS (1)
  1. MIRENA [Suspect]
     Active Substance: LEVONORGESTREL
     Indication: CONTRACEPTION
     Dosage: 20 MCG/24HR, CONT
     Route: 015
     Dates: start: 20081203, end: 20120417

REACTIONS (8)
  - Injury [None]
  - Emotional distress [None]
  - Menorrhagia [None]
  - Genital haemorrhage [None]
  - Device dislocation [None]
  - Uterine perforation [None]
  - Abdominal pain [None]
  - Anxiety [None]

NARRATIVE: CASE EVENT DATE: 201204
